FAERS Safety Report 6813699-7 (Version None)
Quarter: 2010Q3

REPORT INFORMATION
  Report Type: 
  Country: None (occurrence: None)
  Receive Date: 20100701
  Receipt Date: 20100625
  Transmission Date: 20110219
  Serious: Yes (Other)
  Sender: FDA-Public Use
  Company Number: GR-AMGEN-KDL418946

PATIENT
  Sex: Male

DRUGS (2)
  1. VECTIBIX [Suspect]
     Indication: COLORECTAL CANCER
  2. CAMPTOSAR [Suspect]

REACTIONS (4)
  - DIARRHOEA [None]
  - MOUTH ULCERATION [None]
  - SKIN TOXICITY [None]
  - WEIGHT DECREASED [None]
